FAERS Safety Report 24173248 (Version 2)
Quarter: 2024Q3

REPORT INFORMATION
  Report Type: Spontaneous
  Country: US (occurrence: US)
  Receive Date: 20240805
  Receipt Date: 20240816
  Transmission Date: 20241016
  Serious: No
  Sender: CHATTEM
  Company Number: US-OPELLA-2024OHG025654

PATIENT
  Age: 82 Year
  Sex: Female

DRUGS (3)
  1. ALLEGRA D-12 HOUR [Suspect]
     Active Substance: FEXOFENADINE HYDROCHLORIDE\PSEUDOEPHEDRINE HYDROCHLORIDE
     Indication: Rhinorrhoea
     Dosage: STRENGTH: 60 MG+120 MG; EXPIRY DATE: 30-JUN-2026
     Route: 048
     Dates: start: 2024
  2. ALLEGRA D-12 HOUR [Suspect]
     Active Substance: FEXOFENADINE HYDROCHLORIDE\PSEUDOEPHEDRINE HYDROCHLORIDE
     Indication: Oropharyngeal pain
  3. ALLEGRA D-12 HOUR [Suspect]
     Active Substance: FEXOFENADINE HYDROCHLORIDE\PSEUDOEPHEDRINE HYDROCHLORIDE
     Indication: Cough

REACTIONS (2)
  - Wrong technique in product usage process [Unknown]
  - Product residue present [Unknown]
